FAERS Safety Report 25617945 (Version 1)
Quarter: 2025Q3

REPORT INFORMATION
  Report Type: Spontaneous
  Country: US (occurrence: None)
  Receive Date: 20250729
  Receipt Date: 20250729
  Transmission Date: 20251021
  Serious: No
  Sender: FDA-CTU
  Company Number: None

PATIENT
  Age: 62 Year
  Sex: Male

DRUGS (16)
  1. KEVZARA [Suspect]
     Active Substance: SARILUMAB
     Indication: Rheumatoid arthritis
     Route: 058
     Dates: start: 20250722, end: 20250722
  2. ASPIRIN [Concomitant]
     Active Substance: ASPIRIN
  3. ATORVASTATIN [Concomitant]
     Active Substance: ATORVASTATIN
  4. ALLOPURINOL [Concomitant]
     Active Substance: ALLOPURINOL
  5. Vitamin B-12 500mcg [Concomitant]
  6. Ammonium lactate 12% lotion [Concomitant]
  7. OMEPRAZOLE [Concomitant]
     Active Substance: OMEPRAZOLE
  8. Os-cal 500/5 [Concomitant]
  9. VITAMINS [Concomitant]
     Active Substance: VITAMINS
  10. CETIRIZINE [Concomitant]
     Active Substance: CETIRIZINE HYDROCHLORIDE
  11. FOLIC ACID [Concomitant]
     Active Substance: FOLIC ACID
  12. PREDNISONE [Concomitant]
     Active Substance: PREDNISONE
  13. ACETAMINOPHEN [Concomitant]
     Active Substance: ACETAMINOPHEN
  14. ROPINIROLE [Concomitant]
     Active Substance: ROPINIROLE
  15. TAMSULOSIN [Concomitant]
     Active Substance: TAMSULOSIN
  16. ELIQUIS [Concomitant]
     Active Substance: APIXABAN

REACTIONS (6)
  - Peripheral swelling [None]
  - Dry skin [None]
  - Pruritus [None]
  - Skin exfoliation [None]
  - Injection related reaction [None]
  - Refusal of treatment by patient [None]

NARRATIVE: CASE EVENT DATE: 20250722
